FAERS Safety Report 5939774-7 (Version None)
Quarter: 2008Q4

REPORT INFORMATION
  Report Type: 
  Country: None (occurrence: None)
  Receive Date: 20081031
  Receipt Date: 20081031
  Transmission Date: 20090506
  Serious: No
  Sender: FDA-Public Use
  Company Number: None

PATIENT
  Age: 42 Year
  Sex: Male
  Weight: 104.3273 kg

DRUGS (5)
  1. ASTELIN [Suspect]
     Indication: DEAFNESS
     Dosage: TWO METERED SPRAYS DAILY NASAL
     Route: 045
     Dates: start: 20081027, end: 20081027
  2. ASTELIN [Suspect]
     Indication: TINNITUS
     Dosage: TWO METERED SPRAYS DAILY NASAL
     Route: 045
     Dates: start: 20081027, end: 20081027
  3. ZYPREXA [Concomitant]
  4. SYMVASTATIN [Concomitant]
  5. LISINOPRIL [Concomitant]

REACTIONS (1)
  - SUICIDAL IDEATION [None]
